FAERS Safety Report 24813496 (Version 2)
Quarter: 2025Q2

REPORT INFORMATION
  Report Type: Spontaneous
  Country: US (occurrence: US)
  Receive Date: 20250107
  Receipt Date: 20250625
  Transmission Date: 20250716
  Serious: Yes (Hospitalization, Other)
  Sender: SANOFI AVENTIS
  Company Number: US-SA-2025SA004051

PATIENT
  Age: 66 Year
  Sex: Male

DRUGS (8)
  1. DUPIXENT [Suspect]
     Active Substance: DUPILUMAB
     Indication: Asthma
     Route: 058
     Dates: start: 20240923, end: 20240923
  2. DUPIXENT [Suspect]
     Active Substance: DUPILUMAB
     Dosage: 300 MG, QOW
     Route: 058
     Dates: start: 202410
  3. DUPIXENT [Suspect]
     Active Substance: DUPILUMAB
     Dosage: 300 MG, Q3W
     Route: 058
  4. DUPIXENT [Suspect]
     Active Substance: DUPILUMAB
     Dosage: 300 MG, QOW
     Route: 058
  5. AIRSUPRA [Concomitant]
     Active Substance: ALBUTEROL SULFATE\BUDESONIDE
  6. GLATIRAMER ACETATE [Concomitant]
     Active Substance: GLATIRAMER ACETATE
  7. GLATOPA [Concomitant]
     Active Substance: GLATIRAMER ACETATE
  8. TOBRAMYCIN [Concomitant]
     Active Substance: TOBRAMYCIN

REACTIONS (9)
  - Bronchiolitis [Recovered/Resolved]
  - Pneumonia [Recovered/Resolved]
  - Dyspnoea [Recovered/Resolved]
  - Cough [Recovered/Resolved]
  - Pulmonary congestion [Recovering/Resolving]
  - Pleurisy [Unknown]
  - Pain [Recovering/Resolving]
  - Asthenia [Recovering/Resolving]
  - Inappropriate schedule of product administration [Unknown]

NARRATIVE: CASE EVENT DATE: 20240101
